FAERS Safety Report 6747404-X (Version None)
Quarter: 2010Q2

REPORT INFORMATION
  Report Type: 
  Country: None (occurrence: None)
  Receive Date: 20100528
  Receipt Date: 20100525
  Transmission Date: 20101027
  Serious: Yes (Other)
  Sender: FDA-Public Use
  Company Number: DE-SANOFI-AVENTIS-2010SA030271

PATIENT
  Age: 57 Year
  Sex: Male

DRUGS (3)
  1. OXALIPLATIN [Suspect]
     Indication: RECTAL CANCER
     Route: 041
     Dates: start: 20090615, end: 20090615
  2. BEVACIZUMAB [Suspect]
     Indication: RECTAL CANCER
     Route: 041
     Dates: start: 20090615, end: 20090615
  3. CAPECITABINE [Suspect]
     Indication: RECTAL CANCER
     Route: 048
     Dates: start: 20090615

REACTIONS (1)
  - IMPAIRED HEALING [None]
